FAERS Safety Report 18292246 (Version 1)
Quarter: 2020Q3

REPORT INFORMATION
  Report Type: Report from Study
  Country: US (occurrence: US)
  Receive Date: 20200921
  Receipt Date: 20200921
  Transmission Date: 20201103
  Serious: Yes (Other)
  Sender: FDA-Public Use
  Company Number: US-JAZZ-2020-US-009678

PATIENT
  Sex: Male

DRUGS (4)
  1. ADDERALL [Concomitant]
     Active Substance: AMPHETAMINE ASPARTATE\AMPHETAMINE SULFATE\DEXTROAMPHETAMINE SACCHARATE\DEXTROAMPHETAMINE SULFATE
     Indication: PRODUCT USED FOR UNKNOWN INDICATION
  2. XYREM [Suspect]
     Active Substance: SODIUM OXYBATE
     Indication: CATAPLEXY
  3. GABAPENTIN. [Concomitant]
     Active Substance: GABAPENTIN
     Indication: PRODUCT USED FOR UNKNOWN INDICATION
     Dates: start: 20200717
  4. XYREM [Suspect]
     Active Substance: SODIUM OXYBATE
     Indication: NARCOLEPSY
     Dosage: 4.5 GRAM, BID
     Route: 048
     Dates: start: 201911, end: 202007

REACTIONS (5)
  - Cataplexy [Unknown]
  - Weight decreased [Unknown]
  - Decreased appetite [Not Recovered/Not Resolved]
  - Arthralgia [Not Recovered/Not Resolved]
  - Muscle spasms [Recovering/Resolving]

NARRATIVE: CASE EVENT DATE: 2020
